FAERS Safety Report 9023625 (Version 6)
Quarter: 2015Q2

REPORT INFORMATION
  Report Type: Report from Study
  Country: US (occurrence: US)
  Receive Date: 20130121
  Receipt Date: 20150504
  Transmission Date: 20150821
  Serious: Yes (Hospitalization)
  Sender: FDA-Public Use
  Company Number: US-ACTELION-A-US2013-77604

PATIENT
  Age: 71 Year
  Sex: Female

DRUGS (3)
  1. TRACLEER [Suspect]
     Active Substance: BOSENTAN\BOSENTAN MONOHYDRATE
     Indication: PULMONARY ARTERIAL HYPERTENSION
     Dosage: 125 MG, BID
     Route: 048
     Dates: start: 20111201
  2. TRACLEER [Suspect]
     Active Substance: BOSENTAN\BOSENTAN MONOHYDRATE
     Dosage: UNK
     Route: 048
  3. ADCIRCA [Concomitant]
     Active Substance: TADALAFIL

REACTIONS (18)
  - Ascites [Recovering/Resolving]
  - Neck injury [Unknown]
  - Musculoskeletal pain [Unknown]
  - Fall [Unknown]
  - Anaemia [Unknown]
  - Hypoxia [Unknown]
  - Weight decreased [Unknown]
  - Head injury [Unknown]
  - Fluid retention [Recovering/Resolving]
  - Syncope [Unknown]
  - Electrolyte imbalance [Unknown]
  - Pulmonary oedema [Unknown]
  - Haemorrhagic arteriovenous malformation [Recovering/Resolving]
  - Oedema [Unknown]
  - Transfusion [Recovering/Resolving]
  - Packed red blood cell transfusion [Unknown]
  - Decreased appetite [Unknown]
  - Nausea [Unknown]

NARRATIVE: CASE EVENT DATE: 20121219
